FAERS Safety Report 21382631 (Version 1)
Quarter: 2022Q3

REPORT INFORMATION
  Report Type: Other
  Country: US (occurrence: None)
  Receive Date: 20220927
  Receipt Date: 20220927
  Transmission Date: 20221027
  Serious: Yes (Hospitalization, Other)
  Sender: FDA-Public Use
  Company Number: US-ROCHE-2615228

PATIENT
  Age: 82 Year
  Sex: Male
  Weight: 76.5 kg

DRUGS (22)
  1. VENCLEXTA [Suspect]
     Active Substance: VENETOCLAX
     Indication: Chronic lymphocytic leukaemia
     Dosage: TAKE 20MG PO DAILY DAYS 1-7, 50MG PO DAILY DAYS 8-14, 100MG PO DAILY DAYS 15-21, 200MG PO DAILY DAYS
     Route: 048
     Dates: start: 20200513, end: 202104
  2. VENCLEXTA [Suspect]
     Active Substance: VENETOCLAX
     Route: 048
     Dates: start: 20200622, end: 202104
  3. VENCLEXTA [Suspect]
     Active Substance: VENETOCLAX
     Dosage: TAKE 4 TABLETS (400MG TOTAL) BY MOUTH 1 TIME EACH DAY
     Route: 048
     Dates: start: 20220725
  4. VENCLEXTA [Suspect]
     Active Substance: VENETOCLAX
     Route: 048
  5. OBINUTUZUMAB [Suspect]
     Active Substance: OBINUTUZUMAB
     Indication: Chronic lymphocytic leukaemia
     Route: 042
  6. RITUXAN [Suspect]
     Active Substance: RITUXIMAB
     Indication: Product used for unknown indication
     Route: 065
     Dates: start: 201812
  7. COENZYME Q10 [Concomitant]
     Active Substance: DIETARY SUPPLEMENT\UBIDECARENONE
  8. HERBALS\TURMERIC [Concomitant]
     Active Substance: HERBALS\TURMERIC
     Route: 048
  9. PROCHLORPERAZINE [Concomitant]
     Active Substance: PROCHLORPERAZINE
     Indication: Nausea
     Route: 048
  10. PROCHLORPERAZINE [Concomitant]
     Active Substance: PROCHLORPERAZINE
     Indication: Vomiting
  11. NIACIN [Concomitant]
     Active Substance: NIACIN
     Route: 048
  12. LOSARTAN [Concomitant]
     Active Substance: LOSARTAN
     Route: 048
  13. EZETIMIBE [Concomitant]
     Active Substance: EZETIMIBE
     Route: 048
  14. DEXAMETHASONE [Concomitant]
     Active Substance: DEXAMETHASONE
     Route: 048
  15. CLOPIDOGREL [Concomitant]
     Active Substance: CLOPIDOGREL BISULFATE
     Route: 048
  16. CITALOPRAM [Concomitant]
     Active Substance: CITALOPRAM HYDROBROMIDE
     Dosage: 1 TAB BY MOUTH ALTERNATE WITH 5HTP
     Route: 048
  17. ASPIRIN [Concomitant]
     Active Substance: ASPIRIN
  18. ASCORBIC ACID [Concomitant]
     Active Substance: ASCORBIC ACID
  19. 5-HTP [Concomitant]
  20. ALLOPURINOL [Concomitant]
     Active Substance: ALLOPURINOL
     Route: 048
  21. CHOLECALCIFEROL [Concomitant]
     Active Substance: CHOLECALCIFEROL
     Dosage: 5000 UNITS
     Route: 048
  22. FUROSEMIDE [Concomitant]
     Active Substance: FUROSEMIDE

REACTIONS (11)
  - Febrile neutropenia [Unknown]
  - COVID-19 pneumonia [Unknown]
  - COVID-19 [Unknown]
  - Fatigue [Unknown]
  - Arthralgia [Unknown]
  - Infusion related reaction [Unknown]
  - Drug intolerance [Unknown]
  - Malaise [Unknown]
  - Asthenia [Unknown]
  - Drug hypersensitivity [Unknown]
  - Deafness [Unknown]

NARRATIVE: CASE EVENT DATE: 20220101
